FAERS Safety Report 4767771-6 (Version None)
Quarter: 2005Q3

REPORT INFORMATION
  Report Type: 
  Country: None (occurrence: None)
  Receive Date: 20050912
  Receipt Date: 20050831
  Transmission Date: 20060218
  Serious: Yes (Death, Hospitalization)
  Sender: FDA-Public Use
  Company Number: 2005084456

PATIENT
  Age: 72 Year
  Sex: Female

DRUGS (10)
  1. ATORVASTATIN CALCIUM [Suspect]
     Indication: HYPERCHOLESTEROLAEMIA
     Dosage: 80 MG (80 MG, 1 IN 1 D), ORAL
     Route: 048
     Dates: start: 20050417, end: 20050510
  2. ATORVASTATIN CALCIUM [Suspect]
     Indication: MYOCARDIAL INFARCTION
     Dosage: 80 MG (80 MG, 1 IN 1 D), ORAL
     Route: 048
     Dates: start: 20050417, end: 20050510
  3. AMIODARONE HCL [Suspect]
     Indication: ARRHYTHMIA
     Dosage: (1 IN 1 D), ORAL
     Route: 048
     Dates: start: 20050417, end: 20050511
  4. CLOPIDOGREL BISULFATE [Concomitant]
  5. BISOPROLOL (BISOPROLOL) [Concomitant]
  6. INSULIN [Concomitant]
  7. PAROXETINE HCL [Concomitant]
  8. CIPROFLOXACIN HCL [Concomitant]
  9. ACETAMINOPHEN [Concomitant]
  10. ACETYLSALICYLATE LYSINE (ACETYLSALICYLATE LYSINE) [Concomitant]

REACTIONS (8)
  - CARDIAC FAILURE [None]
  - CONDITION AGGRAVATED [None]
  - CYTOLYTIC HEPATITIS [None]
  - DEPRESSION [None]
  - DIABETES MELLITUS [None]
  - HEPATITIS [None]
  - HEPATITIS CHOLESTATIC [None]
  - PYELONEPHRITIS [None]
